FAERS Safety Report 6626984-9 (Version None)
Quarter: 2010Q1

REPORT INFORMATION
  Report Type: 
  Country: None (occurrence: None)
  Receive Date: 20100308
  Receipt Date: 20100222
  Transmission Date: 20100710
  Serious: Yes (Other)
  Sender: FDA-Public Use
  Company Number: 1000010422

PATIENT
  Sex: Female

DRUGS (4)
  1. ESCITALOPRAM [Suspect]
     Indication: POST-TRAUMATIC STRESS DISORDER
     Dosage: 10 MG, ORAL
     Route: 048
  2. ESCITALOPRAM [Suspect]
     Indication: POST-TRAUMATIC STRESS DISORDER
     Dosage: 5 MG, ORAL
     Route: 048
     Dates: end: 20100101
  3. AERIUS [Concomitant]
  4. NAZONEX [Concomitant]

REACTIONS (14)
  - AGGRESSION [None]
  - ANXIETY [None]
  - DECREASED APPETITE [None]
  - DIZZINESS [None]
  - DYSARTHRIA [None]
  - MALAISE [None]
  - MULTIPLE ALLERGIES [None]
  - NAUSEA [None]
  - ORAL DYSAESTHESIA [None]
  - PARAESTHESIA [None]
  - RESPIRATORY DISORDER [None]
  - SUICIDAL IDEATION [None]
  - SWOLLEN TONGUE [None]
  - WITHDRAWAL SYNDROME [None]
